FAERS Safety Report 4611526-X (Version None)
Quarter: 2005Q1

REPORT INFORMATION
  Report Type: 
  Country: None (occurrence: None)
  Receive Date: 20050317
  Receipt Date: 20050228
  Transmission Date: 20050727
  Serious: Yes (Death)
  Sender: FDA-Public Use
  Company Number: JP-ROCHE-397349

PATIENT
  Age: 2 Year
  Sex: Male

DRUGS (2)
  1. TAMIFLU [Suspect]
     Indication: INFLUENZA
     Route: 048
     Dates: start: 20050224, end: 20050227
  2. PHENOBAL [Concomitant]
     Route: 065
     Dates: start: 20030408

REACTIONS (3)
  - BLOOD ELECTROLYTES ABNORMAL [None]
  - BLOOD UREA ABNORMAL [None]
  - CARDIO-RESPIRATORY ARREST [None]
